FAERS Safety Report 25083250 (Version 2)
Quarter: 2025Q1

REPORT INFORMATION
  Report Type: Report from Study
  Country: US (occurrence: US)
  Receive Date: 20250317
  Receipt Date: 20250328
  Transmission Date: 20250409
  Serious: No
  Sender: BIOVITRUM
  Company Number: US-BIOVITRUM-2025-US-003321

PATIENT
  Age: 27 Year
  Sex: Female

DRUGS (2)
  1. KINERET [Suspect]
     Active Substance: ANAKINRA
     Indication: Product used for unknown indication
     Route: 058
  2. KINERET [Suspect]
     Active Substance: ANAKINRA
     Route: 058

REACTIONS (9)
  - Dyspnoea [Unknown]
  - Adverse drug reaction [Unknown]
  - Dizziness [Unknown]
  - Heart rate abnormal [Unknown]
  - Rash [Unknown]
  - Swelling face [Unknown]
  - Swelling [Unknown]
  - Presyncope [Unknown]
  - Intentional dose omission [Unknown]
